FAERS Safety Report 20137749 (Version 2)
Quarter: 2022Q1

REPORT INFORMATION
  Report Type: Report from Study
  Country: CA (occurrence: CA)
  Receive Date: 20211202
  Receipt Date: 20220208
  Transmission Date: 20220423
  Serious: Yes (Hospitalization, Other)
  Sender: FDA-Public Use
  Company Number: CA-JNJFOC-20211120683

PATIENT
  Age: 52 Year
  Sex: Male
  Weight: 126.7 kg

DRUGS (1)
  1. REMICADE [Suspect]
     Active Substance: INFLIXIMAB
     Indication: Psoriatic arthropathy
     Dosage: ADDITIONAL EXPIRY DATE: 31-JAN-2024
     Route: 042
     Dates: start: 20131219

REACTIONS (3)
  - Gastrointestinal carcinoma [Unknown]
  - Ammonia increased [Unknown]
  - Varices oesophageal [Unknown]

NARRATIVE: CASE EVENT DATE: 20211001
